FAERS Safety Report 17217933 (Version 2)
Quarter: 2020Q1

REPORT INFORMATION
  Report Type: Spontaneous
  Country: GB (occurrence: GB)
  Receive Date: 20191231
  Receipt Date: 20200211
  Transmission Date: 20200409
  Serious: Yes (Death, Life-Threatening, Hospitalization, Disabling, Congenital Anomaly)
  Sender: FDA-Public Use
  Company Number: GB-TEVA-2019-GB-1159741

PATIENT
  Age: 73 Year
  Sex: Male
  Weight: 117 kg

DRUGS (18)
  1. FEBUXOSTAT. [Suspect]
     Active Substance: FEBUXOSTAT
     Indication: TUMOUR LYSIS SYNDROME
     Dosage: 80 MG EACH MORNING
     Route: 048
     Dates: start: 20190817, end: 20190902
  2. VENETOCLAX. [Suspect]
     Active Substance: VENETOCLAX
     Indication: CHRONIC LYMPHOCYTIC LEUKAEMIA
     Dosage: 80 MG
     Dates: start: 20190817, end: 20190902
  3. BISOPROLOL FUMARATE. [Concomitant]
     Active Substance: BISOPROLOL FUMARATE
     Indication: HEART RATE DECREASED
     Dosage: 2.5 MG
     Dates: end: 20190904
  4. RAMIPRIL. [Concomitant]
     Active Substance: RAMIPRIL
     Indication: HYPOTENSION
     Dosage: 1.25 MG
     Dates: end: 20190817
  5. FUROSEMIDE. [Concomitant]
     Active Substance: FUROSEMIDE
     Dosage: 40 MG EACH MORNING
     Dates: end: 20190821
  6. RITUXIMAB. [Concomitant]
     Active Substance: RITUXIMAB
  7. INSULIN HUMAN ISOPHANE (RDNA) [Concomitant]
  8. RASBURICASE [Concomitant]
     Active Substance: RASBURICASE
     Dosage: 6 MG
     Dates: start: 20190802
  9. TAZOCIN [Concomitant]
     Active Substance: PIPERACILLIN SODIUM\TAZOBACTAM SODIUM
     Dates: start: 20190825, end: 20190830
  10. VENETOCLAX. [Suspect]
     Active Substance: VENETOCLAX
     Dosage: 20 MG EACH MORNING
     Dates: start: 20190809, end: 20190816
  11. CLARITHROMYCIN. [Concomitant]
     Active Substance: CLARITHROMYCIN
     Dates: start: 20190829, end: 20190830
  12. ACICLOVIR [Concomitant]
     Active Substance: ACYCLOVIR
     Dosage: 800 MG
  13. EPLERENONE. [Concomitant]
     Active Substance: EPLERENONE
     Indication: HYPOTENSION
     Dosage: 12.5 MG
  14. COTRIMOXAZOLE [Concomitant]
     Active Substance: SULFAMETHOXAZOLE\TRIMETHOPRIM
     Dosage: 960 MG MONDAY, WEDNESDAY AND FRIDAY
     Dates: start: 201602, end: 20190821
  15. ATORVASTATIN CALCIUM. [Concomitant]
     Active Substance: ATORVASTATIN CALCIUM
     Dosage: 40 MG EACH NIGHT
     Dates: end: 20190904
  16. VENETOCLAX. [Suspect]
     Active Substance: VENETOCLAX
     Dosage: 20 MG EACH MORNING
     Route: 048
     Dates: start: 20190802, end: 20190808
  17. PIPERACILLIN SODIUM [Concomitant]
     Active Substance: PIPERACILLIN SODIUM
  18. ALLOPURINOL. [Suspect]
     Active Substance: ALLOPURINOL
     Indication: TUMOUR LYSIS SYNDROME
     Dosage: 30 MG EACH MORNING
     Route: 048
     Dates: start: 20170216, end: 20190815

REACTIONS (22)
  - Rash pruritic [Fatal]
  - Cardiac failure [Fatal]
  - Oedema peripheral [Fatal]
  - Dry skin [Fatal]
  - Blister [Fatal]
  - Acute kidney injury [Fatal]
  - Dyspnoea [Fatal]
  - Rash vesicular [Fatal]
  - Skin discolouration [Fatal]
  - Skin exfoliation [Fatal]
  - Skin weeping [Fatal]
  - Folliculitis [Fatal]
  - Sepsis [Fatal]
  - Anaemia [Fatal]
  - Chest pain [Fatal]
  - Pancytopenia [Fatal]
  - Heart rate abnormal [Fatal]
  - Condition aggravated [Fatal]
  - Angina pectoris [Fatal]
  - Toxic epidermal necrolysis [Fatal]
  - Erythema [Fatal]
  - Skin disorder [Fatal]

NARRATIVE: CASE EVENT DATE: 20190726
